APPROVED DRUG PRODUCT: CHLORHEXIDINE GLUCONATE
Active Ingredient: CHLORHEXIDINE GLUCONATE
Strength: 0.12%
Dosage Form/Route: SOLUTION;DENTAL
Application: A074356 | Product #001
Applicant: SCIEGEN PHARMACEUTICALS INC
Approved: May 7, 1996 | RLD: No | RS: No | Type: DISCN